FAERS Safety Report 9151834 (Version 2)
Quarter: 2013Q1

REPORT INFORMATION
  Report Type: Spontaneous
  Country: US (occurrence: US)
  Receive Date: 20130308
  Receipt Date: 20130329
  Transmission Date: 20140127
  Serious: Yes (Death)
  Sender: FDA-Public Use
  Company Number: US-GLAXOSMITHKLINE-A1014821A

PATIENT
  Age: 54 Year
  Sex: Female

DRUGS (7)
  1. TYKERB [Suspect]
     Indication: BREAST CANCER
     Dosage: 250MG TWICE PER DAY
     Route: 048
     Dates: start: 20121205
  2. AMLODIPINE BESYLATE [Concomitant]
  3. CELEXA [Concomitant]
  4. LAMICTAL [Concomitant]
  5. DEXAMETHASONE [Concomitant]
  6. KEPPRA [Concomitant]
  7. KLOR-CON [Concomitant]

REACTIONS (3)
  - Metastatic neoplasm [Fatal]
  - Metastases to meninges [Fatal]
  - Diarrhoea [Unknown]
